FAERS Safety Report 7772303-4 (Version None)
Quarter: 2011Q3

REPORT INFORMATION
  Report Type: 
  Country: None (occurrence: None)
  Receive Date: 20110922
  Receipt Date: 20110211
  Transmission Date: 20111222
  Serious: No
  Sender: FDA-Public Use
  Company Number: US-ASTRAZENECA-2011SE08412

PATIENT
  Age: 63 Year
  Sex: Female

DRUGS (3)
  1. SEROQUEL [Suspect]
     Indication: DEPRESSION
     Route: 048
     Dates: start: 20090401
  2. SEROQUEL [Suspect]
     Indication: BIPOLAR DISORDER
     Route: 048
     Dates: start: 20090401
  3. LEXAPRO [Concomitant]
     Dates: start: 20090401

REACTIONS (8)
  - DIABETES MELLITUS [None]
  - LIPIDS INCREASED [None]
  - BLOOD GLUCOSE INCREASED [None]
  - RENAL FAILURE [None]
  - BLOOD TRIGLYCERIDES INCREASED [None]
  - CATARACT [None]
  - GLOMERULAR FILTRATION RATE DECREASED [None]
  - BLOOD CHOLESTEROL INCREASED [None]
